FAERS Safety Report 8503651-8 (Version None)
Quarter: 2012Q3

REPORT INFORMATION
  Report Type: 
  Country: None (occurrence: None)
  Receive Date: 20120711
  Receipt Date: 20120626
  Transmission Date: 20120928
  Serious: Yes (Hospitalization, Disabling)
  Sender: FDA-Public Use
  Company Number: JP-WATSON-2012-09559

PATIENT
  Sex: Male

DRUGS (4)
  1. RAPAFLO [Suspect]
     Indication: DYSURIA
     Dosage: 2 MG, BID
     Route: 048
     Dates: start: 20120515, end: 20120519
  2. CHINESE MEDICINE (NINJIN-YOEI-TO) [Suspect]
     Indication: PRODUCT USED FOR UNKNOWN INDICATION
     Dosage: 9 G, QD
     Route: 048
     Dates: end: 20120519
  3. LENDORMIN [Concomitant]
     Indication: PRODUCT USED FOR UNKNOWN INDICATION
     Dosage: UNK
     Route: 048
     Dates: end: 20120519
  4. OLMESARTAN MEDOXOMIL [Suspect]
     Indication: PRODUCT USED FOR UNKNOWN INDICATION
     Dosage: 20 MG, DAILY
     Route: 048
     Dates: start: 20120406, end: 20120519

REACTIONS (2)
  - MOUTH HAEMORRHAGE [None]
  - PLATELET COUNT DECREASED [None]
